FAERS Safety Report 17968454 (Version 22)
Quarter: 2023Q2

REPORT INFORMATION
  Report Type: Spontaneous
  Country: BR (occurrence: BR)
  Receive Date: 20200701
  Receipt Date: 20230421
  Transmission Date: 20230722
  Serious: Yes (Life-Threatening, Hospitalization, Other)
  Sender: FDA-Public Use
  Company Number: BR-GLAXOSMITHKLINE-BR2019GSK104198

PATIENT

DRUGS (15)
  1. BENLYSTA [Suspect]
     Active Substance: BELIMUMAB
     Indication: Systemic lupus erythematosus
     Dosage: 800 MG
     Route: 042
     Dates: start: 20190424
  2. BENLYSTA [Suspect]
     Active Substance: BELIMUMAB
     Dosage: UNK
     Route: 042
  3. BENLYSTA [Suspect]
     Active Substance: BELIMUMAB
     Dosage: 400 MG
  4. BENLYSTA [Suspect]
     Active Substance: BELIMUMAB
     Indication: Systemic lupus erythematosus
     Dosage: UNK
     Dates: start: 20190424
  5. AZATHIOPRINE [Suspect]
     Active Substance: AZATHIOPRINE
     Indication: Product used for unknown indication
     Dosage: UNK
  6. PREDNISONE [Suspect]
     Active Substance: PREDNISONE
     Indication: Product used for unknown indication
     Dosage: UNK
  7. CARVEDILOL [Suspect]
     Active Substance: CARVEDILOL
     Indication: Product used for unknown indication
     Dosage: UNK
  8. PANTOPRAZOLE [Suspect]
     Active Substance: PANTOPRAZOLE
     Indication: Product used for unknown indication
     Dosage: UNK
  9. SUCRALFATE [Suspect]
     Active Substance: SUCRALFATE
     Indication: Product used for unknown indication
     Dosage: UNK
  10. GLIFAGE [Suspect]
     Active Substance: METFORMIN HYDROCHLORIDE
     Indication: Product used for unknown indication
     Dosage: UNK
  11. LACOSAMIDE [Suspect]
     Active Substance: LACOSAMIDE
     Indication: Product used for unknown indication
     Dosage: UNK
  12. AMLODIPINE [Suspect]
     Active Substance: AMLODIPINE BESYLATE
     Indication: Product used for unknown indication
     Dosage: UNK
  13. APIXABAN [Suspect]
     Active Substance: APIXABAN
     Indication: Product used for unknown indication
     Dosage: UNK
  14. METFORMIN [Suspect]
     Active Substance: METFORMIN HYDROCHLORIDE
     Indication: Product used for unknown indication
     Dosage: UNK
  15. MIRTAZAPINE [Suspect]
     Active Substance: MIRTAZAPINE
     Dosage: UNK

REACTIONS (60)
  - Chronic disease [Unknown]
  - Systemic lupus erythematosus [Unknown]
  - Vomiting [Recovered/Resolved]
  - Headache [Recovered/Resolved]
  - Pain in extremity [Recovered/Resolved]
  - Dizziness [Unknown]
  - Hypoaesthesia [Unknown]
  - Thrombosis [Recovering/Resolving]
  - Limb discomfort [Unknown]
  - Speech disorder [Unknown]
  - Cerebral ischaemia [Unknown]
  - Condition aggravated [Unknown]
  - Hypokinesia [Unknown]
  - Nausea [Unknown]
  - Thrombocytopenia [Unknown]
  - Haematemesis [Recovering/Resolving]
  - Antiphospholipid syndrome [Unknown]
  - Haematochezia [Unknown]
  - Haematemesis [Unknown]
  - Haemorrhage [Recovering/Resolving]
  - Hepatic cirrhosis [Unknown]
  - Melaena [Unknown]
  - Portal hypertension [Unknown]
  - Thrombocytopenia [Not Recovered/Not Resolved]
  - Seizure [Unknown]
  - Hepatic failure [Unknown]
  - Injury [Unknown]
  - Weight decreased [Unknown]
  - Herpes virus infection [Unknown]
  - Asthenia [Unknown]
  - Platelet count decreased [Not Recovered/Not Resolved]
  - Arthralgia [Not Recovered/Not Resolved]
  - Blood pressure increased [Unknown]
  - Malaise [Unknown]
  - Weight increased [Unknown]
  - Fear [Unknown]
  - Ill-defined disorder [Unknown]
  - Coronavirus infection [Unknown]
  - Confusional state [Unknown]
  - Memory impairment [Not Recovered/Not Resolved]
  - Urinary tract infection [Not Recovered/Not Resolved]
  - Liver disorder [Unknown]
  - Hypersplenism [Unknown]
  - Abdominal pain [Unknown]
  - Splenomegaly [Unknown]
  - Increased liver stiffness [Unknown]
  - Varices oesophageal [Unknown]
  - Osteoarthritis [Unknown]
  - Hernia [Unknown]
  - Chest pain [Unknown]
  - Burning sensation [Unknown]
  - Dizziness [Unknown]
  - Somnolence [Unknown]
  - Speech disorder [Unknown]
  - Asthenia [Unknown]
  - Obesity [Unknown]
  - Product use in unapproved indication [Unknown]
  - Inappropriate schedule of product administration [Unknown]
  - Product prescribing issue [Unknown]
  - Product dose omission issue [Unknown]

NARRATIVE: CASE EVENT DATE: 20200701
